FAERS Safety Report 14597714 (Version 1)
Quarter: 2018Q1

REPORT INFORMATION
  Report Type: Spontaneous
  Country: US (occurrence: US)
  Receive Date: 20180302
  Receipt Date: 20180302
  Transmission Date: 20180509
  Serious: No
  Sender: FDA-Public Use
  Company Number: None

PATIENT
  Age: 55 Year
  Sex: Female
  Weight: 63.5 kg

DRUGS (1)
  1. SPIRONOLACTONE TABS-100MG ACCORD [Suspect]
     Active Substance: SPIRONOLACTONE
     Route: 048
     Dates: start: 20180219, end: 20180228

REACTIONS (2)
  - Parosmia [None]
  - Dysgeusia [None]

NARRATIVE: CASE EVENT DATE: 20180219
